FAERS Safety Report 9370546 (Version 1)
Quarter: 2013Q2

REPORT INFORMATION
  Report Type: Spontaneous
  Country: FR (occurrence: FR)
  Receive Date: 20130626
  Receipt Date: 20130626
  Transmission Date: 20140414
  Serious: Yes (Hospitalization)
  Sender: FDA-Public Use
  Company Number: FR-TEVA-415316ISR

PATIENT
  Age: 81 Year
  Sex: Female

DRUGS (10)
  1. FUROSEMIDE TEVA 40MG [Suspect]
     Dates: end: 20130514
  2. MODOPAR [Suspect]
     Route: 048
  3. DIPIPERON [Suspect]
     Route: 048
  4. LEVOTHYROX [Concomitant]
  5. KARDEGIC [Concomitant]
  6. BISOCE [Concomitant]
  7. TRANSIPEG [Concomitant]
  8. DIFFU K [Concomitant]
  9. STRESAM [Concomitant]
  10. ESOMEPRAZOLE [Concomitant]

REACTIONS (3)
  - Confusional state [Not Recovered/Not Resolved]
  - Hallucination, visual [Not Recovered/Not Resolved]
  - Cardiac failure [Not Recovered/Not Resolved]
